FAERS Safety Report 24581826 (Version 3)
Quarter: 2025Q3

REPORT INFORMATION
  Report Type: Report from Study
  Country: US (occurrence: US)
  Receive Date: 20241105
  Receipt Date: 20250810
  Transmission Date: 20251020
  Serious: Yes (Other)
  Sender: ALEXION PHARMACEUTICALS
  Company Number: US-AstraZeneca-CH-00735821A

PATIENT
  Sex: Female

DRUGS (1)
  1. SOLIRIS [Suspect]
     Active Substance: ECULIZUMAB
     Indication: Myasthenia gravis
     Route: 065

REACTIONS (7)
  - Hepatic cancer metastatic [Unknown]
  - Bone cancer metastatic [Unknown]
  - Neoplasm malignant [Unknown]
  - Balance disorder [Unknown]
  - Gallbladder disorder [Unknown]
  - Fall [Unknown]
  - Product dose omission issue [Unknown]
